FAERS Safety Report 10150760 (Version 1)
Quarter: 2014Q2

REPORT INFORMATION
  Report Type: Spontaneous
  Country: US (occurrence: US)
  Receive Date: 20140502
  Receipt Date: 20140502
  Transmission Date: 20141212
  Serious: No
  Sender: FDA-Public Use
  Company Number: US-ASTRAZENECA-2013SE48193

PATIENT
  Age: 76 Year
  Sex: Female

DRUGS (2)
  1. PRILOSEC OTC [Suspect]
     Indication: HERNIA
     Route: 048
     Dates: start: 20130528, end: 20130605
  2. ANTIHYPERTENSIVES [Concomitant]

REACTIONS (2)
  - Fall [Recovered/Resolved]
  - Depression [Recovered/Resolved]
